FAERS Safety Report 21536661 (Version 18)
Quarter: 2025Q1

REPORT INFORMATION
  Report Type: Spontaneous
  Country: US (occurrence: US)
  Receive Date: 20221101
  Receipt Date: 20250127
  Transmission Date: 20250408
  Serious: Yes (Hospitalization, Other)
  Sender: PFIZER
  Company Number: US-PFIZER INC-202101636928

PATIENT
  Age: 65 Year
  Sex: Male
  Weight: 72.562 kg

DRUGS (5)
  1. BOSULIF [Suspect]
     Active Substance: BOSUTINIB MONOHYDRATE
     Indication: Chronic myeloid leukaemia
     Dosage: 500 MG, DAILY
     Route: 048
     Dates: start: 20200706, end: 20200828
  2. BOSULIF [Suspect]
     Active Substance: BOSUTINIB MONOHYDRATE
     Route: 048
     Dates: start: 20201118
  3. BOSULIF [Suspect]
     Active Substance: BOSUTINIB MONOHYDRATE
     Route: 048
  4. BOSULIF [Suspect]
     Active Substance: BOSUTINIB MONOHYDRATE
     Dosage: 200 MG, DAILY
     Route: 048
  5. BOSULIF [Suspect]
     Active Substance: BOSUTINIB MONOHYDRATE
     Dosage: 500 MG TABLETS/1 TAB DAILY
     Route: 048

REACTIONS (11)
  - Fall [Unknown]
  - Head injury [Unknown]
  - Concussion [Unknown]
  - Hip fracture [Unknown]
  - Fractured coccyx [Unknown]
  - Spinal fracture [Recovering/Resolving]
  - Myocardial infarction [Unknown]
  - Product dose omission issue [Unknown]
  - Product prescribing error [Unknown]
  - Tooth disorder [Unknown]
  - Toothache [Unknown]

NARRATIVE: CASE EVENT DATE: 20231001
